FAERS Safety Report 21858675 (Version 1)
Quarter: 2023Q1

REPORT INFORMATION
  Report Type: Spontaneous
  Country: US (occurrence: None)
  Receive Date: 20230112
  Receipt Date: 20230112
  Transmission Date: 20230418
  Serious: No
  Sender: FDA-Public Use
  Company Number: None

PATIENT
  Age: 65 Year
  Sex: Female

DRUGS (1)
  1. CABOMETYX [Suspect]
     Active Substance: CABOZANTINIB S-MALATE
     Indication: Renal cell carcinoma
     Route: 048
     Dates: start: 20221229

REACTIONS (5)
  - Malaise [None]
  - Nausea [None]
  - Diarrhoea [None]
  - Dyspnoea [None]
  - Paraesthesia oral [None]

NARRATIVE: CASE EVENT DATE: 20221231
